FAERS Safety Report 7642170-8 (Version None)
Quarter: 2011Q3

REPORT INFORMATION
  Report Type: 
  Country: None (occurrence: None)
  Receive Date: 20110728
  Receipt Date: 20110720
  Transmission Date: 20111222
  Serious: Yes (Life-Threatening, Hospitalization)
  Sender: FDA-Public Use
  Company Number: SE-ABBOTT-11P-150-0840902-00

PATIENT
  Age: 52 Year
  Sex: Female

DRUGS (12)
  1. VALPROATE SODIUM [Suspect]
     Indication: EPILEPSY
     Dosage: EXTENDED RELEASE, ONCE DAILY
     Route: 048
     Dates: start: 20110401, end: 20110514
  2. ESIDRIX [Suspect]
     Indication: OEDEMA PERIPHERAL
     Route: 048
     Dates: start: 20110414, end: 20110514
  3. PULMICORT [Concomitant]
     Indication: PRODUCT USED FOR UNKNOWN INDICATION
  4. TOPAMAX [Suspect]
     Indication: EPILEPSY
     Route: 048
  5. BRICANYL [Concomitant]
     Indication: PRODUCT USED FOR UNKNOWN INDICATION
  6. ZOLPIDEM TARTRATE [Concomitant]
  7. METFORMIN HCL [Suspect]
     Indication: DIABETES MELLITUS
     Route: 048
     Dates: start: 20110512, end: 20110514
  8. PRAMIPEXOLE DIHYCHLLORIDE [Concomitant]
  9. CITALOPRAM HYDROBROMIDE [Suspect]
     Indication: DEPRESSION
     Route: 048
  10. LORATADINE [Concomitant]
     Indication: PRODUCT USED FOR UNKNOWN INDICATION
  11. POTASSIUM CHLORIDE [Concomitant]
  12. ATARAX [Concomitant]

REACTIONS (3)
  - HYPOKALAEMIA [None]
  - FATIGUE [None]
  - HYPONATRAEMIA [None]
